FAERS Safety Report 14081232 (Version 1)
Quarter: 2017Q4

REPORT INFORMATION
  Report Type: Spontaneous
  Country: GB (occurrence: GB)
  Receive Date: 20171012
  Receipt Date: 20171012
  Transmission Date: 20180321
  Serious: Yes (Death, Other)
  Sender: FDA-Public Use
  Company Number: GB-MYLANLABS-2017M1062901

PATIENT
  Age: 45 Year
  Sex: Male

DRUGS (5)
  1. PREGABALIN. [Concomitant]
     Active Substance: PREGABALIN
  2. KEPPRA [Concomitant]
     Active Substance: LEVETIRACETAM
  3. RISPERIDONE. [Suspect]
     Active Substance: RISPERIDONE
     Indication: LEARNING DISABILITY
     Route: 048
     Dates: start: 20060630
  4. EPILIM [Concomitant]
     Active Substance: VALPROATE SODIUM
  5. HALOPERIDOL. [Concomitant]
     Active Substance: HALOPERIDOL

REACTIONS (2)
  - Cardiac disorder [Fatal]
  - Hyponatraemia [Not Recovered/Not Resolved]

NARRATIVE: CASE EVENT DATE: 20140425
